FAERS Safety Report 4574373-3 (Version None)
Quarter: 2005Q1

REPORT INFORMATION
  Report Type: 
  Country: None (occurrence: None)
  Receive Date: 20050208
  Receipt Date: 20041210
  Transmission Date: 20050727
  Serious: No
  Sender: FDA-Public Use
  Company Number: US-GLAXOSMITHKLINE-A0536970A

PATIENT
  Age: 55 Year
  Sex: Female

DRUGS (1)
  1. PAXIL [Suspect]
     Indication: DRUG USE FOR UNKNOWN INDICATION
     Dosage: 30MG UNKNOWN
     Route: 048
     Dates: start: 19980101

REACTIONS (1)
  - DRUG WITHDRAWAL SYNDROME [None]
